FAERS Safety Report 5638471-5 (Version None)
Quarter: 2008Q1

REPORT INFORMATION
  Report Type: 
  Country: None (occurrence: None)
  Receive Date: 20080226
  Receipt Date: 20070312
  Transmission Date: 20080703
  Serious: Yes (Hospitalization, Other)
  Sender: FDA-Public Use
  Company Number: A0626889A

PATIENT
  Age: 37 Year
  Sex: Male
  Weight: 104.5 kg

DRUGS (2)
  1. IMITREX [Suspect]
     Indication: CLUSTER HEADACHE
     Dosage: 6MG VARIABLE DOSE
     Route: 058
     Dates: start: 19960101, end: 20061109
  2. HYDROCODONE BITARTRATE [Concomitant]
     Route: 048

REACTIONS (1)
  - CHEST PAIN [None]
